FAERS Safety Report 17005921 (Version 3)
Quarter: 2019Q4

REPORT INFORMATION
  Report Type: Spontaneous
  Country: US (occurrence: US)
  Receive Date: 20191107
  Receipt Date: 20191211
  Transmission Date: 20200122
  Serious: No
  Sender: FDA-Public Use
  Company Number: US-SA-2019SA307377

PATIENT
  Age: 67 Year
  Sex: Female

DRUGS (2)
  1. PRALUENT [Suspect]
     Active Substance: ALIROCUMAB
     Dosage: 75 MG
     Route: 058
     Dates: start: 20190223
  2. PRALUENT [Suspect]
     Active Substance: ALIROCUMAB
     Dosage: 150 MG, OTHER
     Route: 058
     Dates: start: 201810

REACTIONS (11)
  - Pain of skin [Unknown]
  - Nightmare [Unknown]
  - Hot flush [Unknown]
  - Nasopharyngitis [Unknown]
  - Cough [Unknown]
  - Arthralgia [Unknown]
  - Influenza [Unknown]
  - Pruritus [Unknown]
  - Dizziness [Unknown]
  - Myalgia [Unknown]
  - Rhinorrhoea [Unknown]

NARRATIVE: CASE EVENT DATE: 20191030
